FAERS Safety Report 17201405 (Version 1)
Quarter: 2019Q4

REPORT INFORMATION
  Report Type: Report from Study
  Country: BR (occurrence: BR)
  Receive Date: 20191226
  Receipt Date: 20191226
  Transmission Date: 20200122
  Serious: Yes (Hospitalization)
  Sender: FDA-Public Use
  Company Number: BR-ELI_LILLY_AND_COMPANY-BR201912010616

PATIENT
  Sex: Female

DRUGS (1)
  1. TERIPARATIDE [Suspect]
     Active Substance: TERIPARATIDE
     Indication: PRODUCT USED FOR UNKNOWN INDICATION
     Dosage: UNK UNK, EACH MORNING
     Route: 065

REACTIONS (6)
  - Asthenia [Unknown]
  - Malaise [Unknown]
  - Gastrointestinal infection [Unknown]
  - Blood pressure increased [Unknown]
  - Syncope [Unknown]
  - Blood pressure decreased [Unknown]
